FAERS Safety Report 21069982 (Version 1)
Quarter: 2022Q3

REPORT INFORMATION
  Report Type: Spontaneous
  Country: FR (occurrence: FR)
  Receive Date: 20220712
  Receipt Date: 20220712
  Transmission Date: 20221026
  Serious: Yes (Hospitalization)
  Sender: FDA-Public Use
  Company Number: None

PATIENT
  Age: 81 Year
  Sex: Female
  Weight: 69 kg

DRUGS (12)
  1. DAPTOMYCIN [Suspect]
     Active Substance: DAPTOMYCIN
     Indication: Infection
     Dosage: 260 MILLIGRAM, QD
     Route: 042
     Dates: start: 20211217, end: 20211219
  2. TAZOBACTAM [Suspect]
     Active Substance: TAZOBACTAM
     Indication: Infection
     Dosage: 1 GRAM, QD
     Route: 042
     Dates: start: 20211217, end: 20211220
  3. MEROPENEM ANHYDROUS [Suspect]
     Active Substance: MEROPENEM ANHYDROUS
     Indication: Infection
     Dosage: 1 GRAM, Q12H
     Route: 042
     Dates: start: 20211220, end: 20211222
  4. PIPERACILLIN [Suspect]
     Active Substance: PIPERACILLIN
     Indication: Infection
     Dosage: 8 GRAM, QD
     Route: 042
     Dates: start: 20211217, end: 20211220
  5. GEMCITABINE [Suspect]
     Active Substance: GEMCITABINE
     Indication: Leiomyosarcoma
     Dosage: 1 GRAM PER SQUARE METRE
     Route: 042
     Dates: start: 20211129, end: 20211213
  6. CHOLECALCIFEROL [Concomitant]
     Active Substance: CHOLECALCIFEROL
     Dosage: UNK
  7. METFORMIN [Concomitant]
     Active Substance: METFORMIN HYDROCHLORIDE
     Dosage: UNK
  8. ASPIRIN [Concomitant]
     Active Substance: ASPIRIN
     Dosage: UNK
  9. LANSOPRAZOLE [Concomitant]
     Active Substance: LANSOPRAZOLE
     Dosage: UNK
  10. IRBESARTAN [Concomitant]
     Active Substance: IRBESARTAN
     Dosage: UNK
  11. LIDOCAINE [Concomitant]
     Active Substance: LIDOCAINE
  12. PREGABALIN [Concomitant]
     Active Substance: PREGABALIN
     Dosage: UNK

REACTIONS (1)
  - Mixed liver injury [Unknown]

NARRATIVE: CASE EVENT DATE: 20211221
